FAERS Safety Report 13639483 (Version 1)
Quarter: 2017Q2

REPORT INFORMATION
  Report Type: Spontaneous
  Country: US (occurrence: US)
  Receive Date: 20170609
  Receipt Date: 20170609
  Transmission Date: 20170830
  Serious: No
  Sender: FDA-Public Use
  Company Number: US-ROCHE-1571900

PATIENT
  Sex: Female
  Weight: 71 kg

DRUGS (2)
  1. LYRICA [Suspect]
     Active Substance: PREGABALIN
     Indication: NEURALGIA
     Route: 065
  2. KLONOPIN [Suspect]
     Active Substance: CLONAZEPAM
     Indication: ANXIETY
     Route: 065

REACTIONS (16)
  - Abdominal distension [Unknown]
  - Intestinal dilatation [Unknown]
  - Oesophageal spasm [Unknown]
  - Drug ineffective [Unknown]
  - Insomnia [Unknown]
  - Ocular hyperaemia [Unknown]
  - Dyspnoea [Unknown]
  - Hypersensitivity [Unknown]
  - Burning sensation [Unknown]
  - Eye pruritus [Unknown]
  - Visual impairment [Unknown]
  - Tinnitus [Unknown]
  - Constipation [Unknown]
  - Abdominal pain upper [Unknown]
  - Vision blurred [Unknown]
  - Fungal infection [Unknown]
